FAERS Safety Report 21358965 (Version 2)
Quarter: 2022Q4

REPORT INFORMATION
  Report Type: Spontaneous
  Country: DE (occurrence: DE)
  Receive Date: 20220921
  Receipt Date: 20221012
  Transmission Date: 20230112
  Serious: Yes (Hospitalization)
  Sender: FDA-Public Use
  Company Number: None

PATIENT
  Age: 53 Year
  Sex: Male

DRUGS (3)
  1. DULOXETINE [Suspect]
     Active Substance: DULOXETINE
     Indication: Product used for unknown indication
     Dosage: 30 MG, DISCONTINUED SINCE 24022020
     Route: 048
     Dates: end: 20200224
  2. VALPROATE SODIUM [Suspect]
     Active Substance: VALPROATE SODIUM
     Indication: Product used for unknown indication
     Dosage: 500|500 MG, 1-1-1-0
     Route: 048
  3. ABILIFY [Suspect]
     Active Substance: ARIPIPRAZOLE
     Indication: Product used for unknown indication
     Dosage: 15 MG,DISCONTINUED SINCE 24022020
     Route: 048
     Dates: end: 20200224

REACTIONS (4)
  - Restlessness [Unknown]
  - Agitation [Unknown]
  - Depressed mood [Unknown]
  - Product administration error [Unknown]

NARRATIVE: CASE EVENT DATE: 20200224
